FAERS Safety Report 5196264-X (Version None)
Quarter: 2006Q4

REPORT INFORMATION
  Report Type: 
  Country: None (occurrence: None)
  Receive Date: 20061222
  Receipt Date: 20061213
  Transmission Date: 20070319
  Serious: Yes (Hospitalization)
  Sender: FDA-Public Use
  Company Number: 2006153568

PATIENT
  Age: 71 Year
  Sex: Female

DRUGS (4)
  1. LIPITOR [Suspect]
     Indication: HYPERLIPIDAEMIA
     Dosage: 5 MG (1 IN 1 D), ORAL
     Route: 048
     Dates: end: 20061204
  2. BLOPRESS (CANDESARTAN CILEXETIL) [Suspect]
     Dosage: 4 MG (1 IN 1 D), ORAL
     Route: 048
     Dates: end: 20061204
  3. DRUG, UNSPECIFIED (DRUG, UNSPECIFIED) [Suspect]
     Dosage: 75 MG (1 IN 1 D), ORAL
     Route: 048
     Dates: end: 20061204
  4. FAROM (FEROPENEM SODIUM) [Suspect]
     Dosage: 600 MG (1 IN 1 D), ORAL
     Route: 048
     Dates: start: 20061118, end: 20061124

REACTIONS (10)
  - ALANINE AMINOTRANSFERASE INCREASED [None]
  - ANOREXIA [None]
  - ASPARTATE AMINOTRANSFERASE INCREASED [None]
  - BILIARY TRACT DISORDER [None]
  - BLOOD ALKALINE PHOSPHATASE INCREASED [None]
  - GAMMA-GLUTAMYLTRANSFERASE INCREASED [None]
  - INFLAMMATION [None]
  - LIVER DISORDER [None]
  - RASH [None]
  - UPPER RESPIRATORY TRACT INFLAMMATION [None]
